FAERS Safety Report 5827773-5 (Version None)
Quarter: 2008Q3

REPORT INFORMATION
  Report Type: 
  Country: None (occurrence: None)
  Receive Date: 20080728
  Receipt Date: 20080717
  Transmission Date: 20090109
  Serious: Yes (Death)
  Sender: FDA-Public Use
  Company Number: CFNT-269

PATIENT
  Age: 55 Year
  Sex: Male

DRUGS (2)
  1. SPECTRACEF [Suspect]
     Indication: PNEUMONIA
     Dosage: 400 MG ORALLY
     Route: 048
  2. SPECTRACEF [Suspect]
     Indication: RESPIRATORY TRACT INFECTION
     Dosage: 400 MG ORALLY
     Route: 048

REACTIONS (1)
  - MYOCARDIAL INFARCTION [None]
